FAERS Safety Report 13423990 (Version 4)
Quarter: 2020Q2

REPORT INFORMATION
  Report Type: Spontaneous
  Country: NO (occurrence: NO)
  Receive Date: 20170410
  Receipt Date: 20200426
  Transmission Date: 20200713
  Serious: Yes (Life-Threatening, Hospitalization, Other)
  Sender: FDA-Public Use
  Company Number: PHHY2017NO048175

PATIENT
  Sex: Female

DRUGS (7)
  1. LITHIUM. [Suspect]
     Active Substance: LITHIUM
     Indication: BIPOLAR DISORDER
  2. CLOMIPRAMINE [Suspect]
     Active Substance: CLOMIPRAMINE
     Indication: FOETAL EXPOSURE DURING PREGNANCY
     Dosage: UNK
     Route: 064
  3. QUETIAPINE. [Suspect]
     Active Substance: QUETIAPINE
     Indication: BIPOLAR DISORDER
  4. QUETIAPINE. [Suspect]
     Active Substance: QUETIAPINE
     Indication: FOETAL EXPOSURE DURING PREGNANCY
     Dosage: UNK
     Route: 064
  5. CLOMIPRAMINE [Suspect]
     Active Substance: CLOMIPRAMINE
     Indication: BIPOLAR DISORDER
  6. FENTANYL. [Suspect]
     Active Substance: FENTANYL
     Indication: FOETAL EXPOSURE DURING PREGNANCY
     Dosage: MATERNAL DOSE: 3G/KG
     Route: 064
  7. LITHIUM. [Suspect]
     Active Substance: LITHIUM
     Indication: FOETAL EXPOSURE DURING PREGNANCY
     Dosage: UNK
     Route: 064

REACTIONS (16)
  - Respiratory failure [Recovered/Resolved]
  - Infantile apnoea [Recovered/Resolved]
  - Irritability [Recovered/Resolved]
  - Ammonia increased [Recovered/Resolved]
  - Coma neonatal [Recovered/Resolved]
  - Drug withdrawal syndrome neonatal [Recovered/Resolved]
  - Apnoea [Recovered/Resolved]
  - Diarrhoea haemorrhagic [Recovered/Resolved]
  - Hyperammonaemia [Recovered/Resolved]
  - Neonatal respiratory distress syndrome [Recovered/Resolved]
  - Foetal distress syndrome [Recovered/Resolved]
  - Abdominal distension [Recovered/Resolved]
  - Intestinal gangrene [Recovered/Resolved]
  - Respiratory distress [Recovered/Resolved]
  - Foetal exposure during pregnancy [Unknown]
  - Hypertonia [Recovered/Resolved]
